FAERS Safety Report 19178930 (Version 1)
Quarter: 2021Q2

REPORT INFORMATION
  Report Type: Spontaneous
  Country: US (occurrence: US)
  Receive Date: 20210423
  Receipt Date: 20210423
  Transmission Date: 20210717
  Serious: Yes (Other)
  Sender: FDA-Public Use
  Company Number: None

PATIENT
  Age: 62 Year
  Sex: Male
  Weight: 96.7 kg

DRUGS (1)
  1. HYDROCORTISONE. [Suspect]
     Active Substance: HYDROCORTISONE
     Indication: ADRENAL INSUFFICIENCY
     Route: 042
     Dates: start: 20210418

REACTIONS (7)
  - Respiratory failure [None]
  - Agitation [None]
  - Substance-induced psychotic disorder [None]
  - Aggression [None]
  - Hypotension [None]
  - Tachycardia [None]
  - Cardio-respiratory arrest [None]

NARRATIVE: CASE EVENT DATE: 20210421
